FAERS Safety Report 4650823-9 (Version None)
Quarter: 2005Q2

REPORT INFORMATION
  Report Type: 
  Country: None (occurrence: None)
  Receive Date: 20050503
  Receipt Date: 20050426
  Transmission Date: 20051028
  Serious: Yes (Hospitalization)
  Sender: FDA-Public Use
  Company Number: PHBS2005NO06149

PATIENT
  Age: 77 Year
  Sex: Male

DRUGS (7)
  1. ESIDRIX [Suspect]
     Indication: CARDIAC FAILURE
     Dosage: 25 MG, QD
     Route: 048
     Dates: start: 20050328, end: 20050331
  2. PLAVIX [Suspect]
     Indication: CARDIAC FAILURE
     Dosage: 300 MG, QD
     Route: 048
     Dates: start: 20050327, end: 20050328
  3. DIURAL [Concomitant]
     Dosage: 40 MG, BID
  4. ALLOPUR [Concomitant]
     Dosage: 300 MG, QD
  5. EMCONCOR [Concomitant]
     Dosage: 2.5 MG, QD
     Dates: start: 20050329
  6. EMCONCOR [Concomitant]
     Dosage: 5 MG, QD
  7. LEVAXIN [Concomitant]
     Indication: HYPOTHYROIDISM
     Dosage: 0.1 MG, QD

REACTIONS (7)
  - ALANINE AMINOTRANSFERASE INCREASED [None]
  - ASPARTATE AMINOTRANSFERASE INCREASED [None]
  - BLOOD ALKALINE PHOSPHATASE INCREASED [None]
  - BLOOD BILIRUBIN INCREASED [None]
  - BLOOD CREATININE INCREASED [None]
  - BLOOD UREA INCREASED [None]
  - TRANSAMINASES INCREASED [None]
